FAERS Safety Report 8312788-8 (Version None)
Quarter: 2012Q2

REPORT INFORMATION
  Report Type: 
  Country: None (occurrence: None)
  Receive Date: 20120426
  Receipt Date: 20120419
  Transmission Date: 20120825
  Serious: No
  Sender: FDA-Public Use
  Company Number: US-PFIZER INC-2012099912

PATIENT

DRUGS (7)
  1. DILANTIN-125 [Suspect]
     Dosage: UNK
  2. ASPIRIN [Suspect]
     Dosage: UNK
  3. AUGMENTIN '125' [Suspect]
     Dosage: UNK
  4. TORADOL [Suspect]
     Dosage: UNK
  5. TEGRETOL [Suspect]
     Dosage: UNK
  6. NEURONTIN [Suspect]
     Dosage: UNK
  7. VICODIN [Suspect]
     Dosage: UNK

REACTIONS (1)
  - DRUG HYPERSENSITIVITY [None]
